FAERS Safety Report 21614089 (Version 2)
Quarter: 2023Q1

REPORT INFORMATION
  Report Type: Spontaneous
  Country: JP (occurrence: JP)
  Receive Date: 20221118
  Receipt Date: 20230315
  Transmission Date: 20230418
  Serious: Yes (Hospitalization, Other)
  Sender: FDA-Public Use
  Company Number: JP-MYLANLABS-2022M1124436

PATIENT
  Age: 53 Year
  Sex: Female

DRUGS (5)
  1. PREGABALIN [Suspect]
     Active Substance: PREGABALIN
     Indication: Spinal osteoarthritis
     Dosage: UNK
     Route: 048
     Dates: start: 202105, end: 2021
  2. PREGABALIN [Suspect]
     Active Substance: PREGABALIN
     Indication: Spinal pain
     Dosage: UNK
     Route: 048
     Dates: start: 2021, end: 202109
  3. PREGABALIN [Suspect]
     Active Substance: PREGABALIN
     Dosage: DECREASED
     Route: 048
     Dates: start: 202109, end: 20211010
  4. LOXOPROFEN [Suspect]
     Active Substance: LOXOPROFEN
     Indication: Spinal osteoarthritis
     Dosage: UNK
     Route: 048
     Dates: start: 202105, end: 20211010
  5. LOXOPROFEN [Suspect]
     Active Substance: LOXOPROFEN
     Indication: Spinal pain

REACTIONS (3)
  - Tubulointerstitial nephritis [Recovered/Resolved]
  - Tubulointerstitial nephritis and uveitis syndrome [Recovering/Resolving]
  - Pyrexia [Recovered/Resolved]

NARRATIVE: CASE EVENT DATE: 20210501
